FAERS Safety Report 8199254-8 (Version None)
Quarter: 2012Q1

REPORT INFORMATION
  Report Type: 
  Country: None (occurrence: None)
  Receive Date: 20120309
  Receipt Date: 20120227
  Transmission Date: 20120608
  Serious: Yes (Other)
  Sender: FDA-Public Use
  Company Number: IT-ELI_LILLY_AND_COMPANY-IT201202007962

PATIENT
  Age: 35 Year
  Sex: Male
  Weight: 80 kg

DRUGS (6)
  1. DELORAZEPAM [Concomitant]
     Dosage: UNK MG, UNK
     Route: 048
     Dates: start: 20120210, end: 20120210
  2. DIAZEPAM [Concomitant]
     Dosage: UNK MG, UNK
     Route: 048
     Dates: start: 20120210, end: 20120210
  3. DAPAROX [Concomitant]
     Dosage: 14 DF, UNK
     Route: 048
     Dates: start: 20120210, end: 20120210
  4. DIAZEPAM [Concomitant]
     Dosage: 10 DF, UNK
     Route: 048
     Dates: start: 20120210, end: 20120210
  5. ZYPREXA [Suspect]
     Dosage: UNK MG, UNK
     Route: 048
     Dates: start: 20120210, end: 20120210
  6. HALDOL [Concomitant]
     Dosage: UNK MG, UNK
     Route: 048
     Dates: start: 20120210, end: 20120210

REACTIONS (3)
  - SLOW RESPONSE TO STIMULI [None]
  - SELF INJURIOUS BEHAVIOUR [None]
  - SOMNOLENCE [None]
